FAERS Safety Report 5557349-9 (Version None)
Quarter: 2007Q4

REPORT INFORMATION
  Report Type: 
  Country: None (occurrence: None)
  Receive Date: 20071214
  Receipt Date: 20071204
  Transmission Date: 20080405
  Serious: Yes (Hospitalization)
  Sender: FDA-Public Use
  Company Number: US-ROCHE-534778

PATIENT
  Age: 9 Year
  Sex: Female

DRUGS (2)
  1. CELLCEPT [Suspect]
     Indication: NEPHROTIC SYNDROME
     Dosage: THE PATIENT WAS ON DOSES RANGING FROM 750 TO 1000 MG.
     Route: 065
     Dates: start: 20060101, end: 20071128
  2. PREDNISONE [Concomitant]

REACTIONS (6)
  - CONVULSION [None]
  - HALLUCINATION, VISUAL [None]
  - HYPERHIDROSIS [None]
  - TREMOR [None]
  - URINARY TRACT INFECTION [None]
  - VOMITING [None]
